FAERS Safety Report 8499098-3 (Version None)
Quarter: 2012Q3

REPORT INFORMATION
  Report Type: 
  Country: None (occurrence: None)
  Receive Date: 20120710
  Receipt Date: 20120626
  Transmission Date: 20120928
  Serious: Yes (Other)
  Sender: FDA-Public Use
  Company Number: AR-AMGEN-ARGSP2012023761

PATIENT
  Age: 63 Year
  Sex: Female

DRUGS (2)
  1. ENBREL [Suspect]
     Indication: RHEUMATOID ARTHRITIS
     Dosage: 50 MG, WEEKLY
     Route: 058
     Dates: start: 20080212, end: 20111201
  2. ENANTYUM [Concomitant]
     Dosage: UNK

REACTIONS (4)
  - LOWER LIMB FRACTURE [None]
  - FALL [None]
  - HAND FRACTURE [None]
  - ECONOMIC PROBLEM [None]
